FAERS Safety Report 19912055 (Version 1)
Quarter: 2021Q4

REPORT INFORMATION
  Report Type: Spontaneous
  Country: US (occurrence: US)
  Receive Date: 20211001
  Receipt Date: 20211001
  Transmission Date: 20220303
  Serious: Yes (Death)
  Sender: FDA-Public Use
  Company Number: None

PATIENT
  Age: 75 Year
  Sex: Female

DRUGS (25)
  1. ESBRIET [Suspect]
     Active Substance: PIRFENIDONE
     Indication: Interstitial lung disease
     Route: 048
     Dates: start: 20210715, end: 202109
  2. ACETAMINOPHN TAB 500MG [Concomitant]
  3. ALBUTEROL AER HFA [Concomitant]
  4. AMPYRA TAB 10MG [Concomitant]
  5. ASPIRIN [Concomitant]
     Active Substance: ASPIRIN
  6. ATORVASTATIN TAB 80MG [Concomitant]
  7. AZATHIOPRINE [Concomitant]
     Active Substance: AZATHIOPRINE
  8. BACLOFEN [Concomitant]
     Active Substance: BACLOFEN
  9. COREG TAB 6.25MG [Concomitant]
  10. CYMBALTA CAP 60MG [Concomitant]
  11. DALFAMPRIDINE [Concomitant]
     Active Substance: DALFAMPRIDINE
  12. DEXILANT CAP 60MG DR [Concomitant]
  13. DIPHEN/ATROP LIQ 2.5/5 [Concomitant]
  14. FAMOTIDINE TAB 40MG [Concomitant]
  15. FERROUS SULF TAB 325MG [Concomitant]
  16. FLONASE ALGY SPR 50MCG [Concomitant]
  17. LEVOTHYROXIN TAB 137MCG [Concomitant]
  18. LISINOPRIL [Concomitant]
     Active Substance: LISINOPRIL
  19. MODAFINIL TAB 200MG [Concomitant]
  20. MULTI VITAMN TAB MINERALS [Concomitant]
  21. POTASSIUM CHLORIDE [Concomitant]
     Active Substance: POTASSIUM CHLORIDE
  22. PRIMIDONE TAB 50MG [Concomitant]
  23. SINGULAIR [Concomitant]
     Active Substance: MONTELUKAST SODIUM
  24. VITAMIN D3 [Concomitant]
     Active Substance: CHOLECALCIFEROL
  25. ZYRTEC ALLGY CAP 10MG [Concomitant]

REACTIONS (1)
  - COVID-19 [None]

NARRATIVE: CASE EVENT DATE: 20210920
